FAERS Safety Report 4339390-7 (Version None)
Quarter: 2004Q2

REPORT INFORMATION
  Report Type: 
  Country: None (occurrence: None)
  Receive Date: 20040415
  Receipt Date: 20040305
  Transmission Date: 20050107
  Serious: Yes (Life-Threatening)
  Sender: FDA-Public Use
  Company Number: JP-MERCK-0403USA00893

PATIENT
  Age: 5 Year
  Sex: Male

DRUGS (10)
  1. ZOVIRAX [Suspect]
     Indication: HERPES ZOSTER
     Route: 042
     Dates: start: 20040223, end: 20040303
  2. CARBENIN [Concomitant]
     Route: 065
     Dates: start: 20040224, end: 20040309
  3. PEPCID [Suspect]
     Indication: GASTRIC ULCER
     Route: 042
     Dates: start: 20040226, end: 20040227
  4. DIFLUCAN [Suspect]
     Indication: PROPHYLAXIS
     Route: 042
     Dates: start: 20040223, end: 20040303
  5. FLUCYTOSINE [Concomitant]
     Route: 042
     Dates: start: 20040209
  6. NIDRAN [Concomitant]
     Route: 042
     Dates: start: 20040209
  7. BAKTAR [Concomitant]
     Route: 048
     Dates: start: 20040223, end: 20040303
  8. ONCOVIN [Suspect]
     Indication: BRAIN NEOPLASM
     Route: 042
     Dates: start: 20040209
  9. ONCOVIN [Suspect]
     Route: 042
     Dates: start: 20040217
  10. ONCOVIN [Suspect]
     Route: 042
     Dates: start: 20040223

REACTIONS (9)
  - ANURIA [None]
  - CONVULSION [None]
  - DIABETES INSIPIDUS [None]
  - ENCEPHALITIS [None]
  - GASTRIC ULCER [None]
  - HERPES ZOSTER [None]
  - HYPONATRAEMIA [None]
  - MENINGITIS [None]
  - RESPIRATORY ARREST [None]
